FAERS Safety Report 7771206-9 (Version None)
Quarter: 2011Q3

REPORT INFORMATION
  Report Type: 
  Country: None (occurrence: None)
  Receive Date: 20110922
  Receipt Date: 20110307
  Transmission Date: 20111222
  Serious: No
  Sender: FDA-Public Use
  Company Number: US-ASTRAZENECA-2011SE09691

PATIENT
  Age: 30 Year
  Sex: Female
  Weight: 76.2 kg

DRUGS (2)
  1. SEROQUEL [Suspect]
     Indication: SCHIZOPHRENIA
     Route: 048
     Dates: start: 20090101, end: 20110208
  2. SEROQUEL [Suspect]
     Indication: MAJOR DEPRESSION
     Route: 048
     Dates: start: 20090101, end: 20110208

REACTIONS (6)
  - DRUG DOSE OMISSION [None]
  - ANGER [None]
  - INSOMNIA [None]
  - NERVOUSNESS [None]
  - MALAISE [None]
  - NAUSEA [None]
